FAERS Safety Report 4784645-5 (Version None)
Quarter: 2005Q3

REPORT INFORMATION
  Report Type: 
  Country: None (occurrence: None)
  Receive Date: 20050930
  Receipt Date: 20050913
  Transmission Date: 20060218
  Serious: Yes (Disabling, Other)
  Sender: FDA-Public Use
  Company Number: US-MERCK-0509USA01732

PATIENT
  Age: 71 Year
  Sex: Female

DRUGS (2)
  1. FOSAMAX [Suspect]
     Indication: OSTEOPENIA
     Route: 048
     Dates: start: 20050907
  2. VITAMIN D (UNSPECIFIED) [Concomitant]
     Route: 065

REACTIONS (3)
  - JOINT EFFUSION [None]
  - PAIN IN EXTREMITY [None]
  - PYREXIA [None]
